FAERS Safety Report 10047563 (Version 2)
Quarter: 2014Q1

REPORT INFORMATION
  Report Type: Spontaneous
  Country: GB (occurrence: GB)
  Receive Date: 20140331
  Receipt Date: 20140331
  Transmission Date: 20141002
  Serious: Yes (Death)
  Sender: FDA-Public Use
  Company Number: GB-TEVA-191675ISR

PATIENT
  Age: 66 Year
  Sex: Female

DRUGS (10)
  1. OXALIPLATIN [Suspect]
     Indication: COLORECTAL CANCER METASTATIC
     Dosage: FREQUENCY REPORTED AS EVERY 21/7 (200 MG)
     Route: 042
     Dates: start: 20090119
  2. AVASTIN [Suspect]
     Indication: COLORECTAL CANCER METASTATIC
     Route: 065
  3. XELODA [Suspect]
     Indication: COLORECTAL CANCER METASTATIC
     Dosage: 3300 MILLIGRAM DAILY;
     Route: 048
     Dates: start: 20090119, end: 20090221
  4. NEUPOGEN [Concomitant]
     Indication: NEUTROPENIA
  5. BUSCOPAN [Concomitant]
  6. HALOPERIDOL [Concomitant]
     Dates: start: 20090225, end: 20090301
  7. CIPROFLOXACIN [Concomitant]
     Route: 042
     Dates: start: 20090221, end: 20090301
  8. MORPHINE [Concomitant]
  9. CEFUROXIME [Concomitant]
     Indication: NEUTROPENIA
     Route: 042
  10. CEFUROXIME [Concomitant]
     Indication: PYREXIA

REACTIONS (4)
  - Colitis [Fatal]
  - Colitis ischaemic [Fatal]
  - Diarrhoea [Unknown]
  - Migraine [Not Recovered/Not Resolved]
